FAERS Safety Report 9434193 (Version 3)
Quarter: 2014Q2

REPORT INFORMATION
  Report Type: Spontaneous
  Country: FR (occurrence: FR)
  Receive Date: 20130801
  Receipt Date: 20140406
  Transmission Date: 20141212
  Serious: Yes (Hospitalization, Other)
  Sender: FDA-Public Use
  Company Number: FR-009507513-2012SP017388

PATIENT
  Age: 55 Year
  Sex: Female

DRUGS (8)
  1. VICTRELIS [Suspect]
     Indication: HEPATITIS CHRONIC ACTIVE
     Dosage: 1 DF, QD
     Route: 048
     Dates: start: 20120126, end: 20120404
  2. PEGASYS [Suspect]
     Indication: HEPATITIS C
     Dosage: UNK
     Dates: start: 20111214, end: 20120404
  3. COPEGUS [Suspect]
     Indication: HEPATITIS C
     Dosage: UNK
     Route: 048
     Dates: start: 20111214, end: 20120404
  4. ISENTRESS [Concomitant]
     Dosage: UNK
     Dates: start: 20110622
  5. TRUVADA [Concomitant]
     Dosage: UNK
     Dates: start: 20110622
  6. ROCEPHIN [Concomitant]
  7. FLAGYL [Concomitant]
  8. GENTAMICIN SULFATE [Concomitant]

REACTIONS (2)
  - Drug reaction with eosinophilia and systemic symptoms [Recovered/Resolved]
  - Pyelonephritis [Unknown]
